FAERS Safety Report 26142972 (Version 1)
Quarter: 2025Q4

REPORT INFORMATION
  Report Type: Spontaneous
  Country: JP (occurrence: JP)
  Receive Date: 20251211
  Receipt Date: 20251211
  Transmission Date: 20260117
  Serious: Yes (Other)
  Sender: UCB
  Company Number: JP-UCBJ-CD202516236UCBPHAPROD

PATIENT
  Age: 10 Year

DRUGS (14)
  1. FINTEPLA [Suspect]
     Active Substance: FENFLURAMINE
     Indication: Severe myoclonic epilepsy of infancy
     Dosage: 0.06 MILLIGRAM/KILOGRAM DAY
  2. FINTEPLA [Suspect]
     Active Substance: FENFLURAMINE
     Dosage: 0.11 MILLIGRAM/KILOGRAM DAILY
  3. FINTEPLA [Suspect]
     Active Substance: FENFLURAMINE
     Dosage: 0.18 MILLIGRAM/KILOGRAM, DAILY
  4. LEVETIRACETAM [Concomitant]
     Active Substance: LEVETIRACETAM
     Indication: Severe myoclonic epilepsy of infancy
     Dosage: 800 MILLIGRAM, ONCE DAILY (QD)
  5. VALPROATE SODIUM [Concomitant]
     Active Substance: VALPROATE SODIUM
     Indication: Severe myoclonic epilepsy of infancy
     Dosage: 580 MILLIGRAM, ONCE DAILY (QD)
  6. VALPROATE SODIUM [Concomitant]
     Active Substance: VALPROATE SODIUM
     Dosage: 600 MILLIGRAM, ONCE DAILY (QD)
  7. VALPROATE SODIUM [Concomitant]
     Active Substance: VALPROATE SODIUM
     Dosage: 620 MILLIGRAM, ONCE DAILY (QD)
  8. CLOBAZAM [Concomitant]
     Active Substance: CLOBAZAM
     Indication: Severe myoclonic epilepsy of infancy
     Dosage: 8 MILLIGRAM, ONCE DAILY (QD)
  9. CLOBAZAM [Concomitant]
     Active Substance: CLOBAZAM
     Dosage: 10 MILLIGRAM, ONCE DAILY (QD)
  10. CLOBAZAM [Concomitant]
     Active Substance: CLOBAZAM
     Dosage: 11 MILLIGRAM, ONCE DAILY (QD)
  11. STIRIPENTOL [Concomitant]
     Active Substance: STIRIPENTOL
     Indication: Severe myoclonic epilepsy of infancy
     Dosage: 1000 MILLIGRAM, ONCE DAILY (QD)
  12. STIRIPENTOL [Concomitant]
     Active Substance: STIRIPENTOL
     Dosage: 900 MILLIGRAM, ONCE DAILY (QD)
  13. STIRIPENTOL [Concomitant]
     Active Substance: STIRIPENTOL
     Dosage: 800 MILLIGRAM, ONCE DAILY (QD)
  14. STIRIPENTOL [Concomitant]
     Active Substance: STIRIPENTOL
     Dosage: 700 MILLIGRAM, ONCE DAILY (QD)

REACTIONS (5)
  - Epilepsy [Unknown]
  - Faeces soft [Unknown]
  - Diarrhoea [Unknown]
  - Off label use [Unknown]
  - Prescribed underdose [Unknown]
